FAERS Safety Report 8454799-8 (Version None)
Quarter: 2012Q2

REPORT INFORMATION
  Report Type: 
  Country: None (occurrence: None)
  Receive Date: 20120621
  Receipt Date: 20120619
  Transmission Date: 20120825
  Serious: Yes (Other)
  Sender: FDA-Public Use
  Company Number: CA-BAYER-2012-060464

PATIENT
  Sex: Female

DRUGS (1)
  1. MIRENA [Suspect]
     Dosage: UNK
     Dates: start: 20090501, end: 20111001

REACTIONS (5)
  - MENSTRUATION DELAYED [None]
  - ABORTION SPONTANEOUS [None]
  - ADVERSE EVENT [None]
  - MENSTRUATION IRREGULAR [None]
  - POLYCYSTIC OVARIES [None]
